FAERS Safety Report 25596438 (Version 1)
Quarter: 2025Q3

REPORT INFORMATION
  Report Type: Spontaneous
  Country: EU (occurrence: EU)
  Receive Date: 20250723
  Receipt Date: 20250723
  Transmission Date: 20251021
  Serious: Yes (Death, Other)
  Sender: SANOFI AVENTIS
  Company Number: None

PATIENT
  Age: 75 Year
  Sex: Female
  Weight: 46 kg

DRUGS (6)
  1. ENOXAPARIN SODIUM [Suspect]
     Active Substance: ENOXAPARIN SODIUM
     Indication: Embolism venous
     Dosage: 40 MG, Q12H
     Route: 058
     Dates: start: 20240209, end: 20240213
  2. ASPIRIN [Suspect]
     Active Substance: ASPIRIN
     Indication: Angina pectoris
     Dosage: 75 MG, QD, START DATE: LONG TIME AGO
     Route: 048
     Dates: end: 20240211
  3. Noliprel [Concomitant]
     Indication: Essential hypertension
     Dosage: 12.5 MG, QD, START DATE: LONG TIME AGO; DOSE 10+2.5MG
     Route: 048
     Dates: end: 20240213
  4. Paracetamol aurovitas [Concomitant]
     Indication: Pancreatic carcinoma
     Dosage: 1000 MG, Q8H
     Route: 048
     Dates: start: 20240209, end: 20240212
  5. TRAMADOL HYDROCHLORIDE [Concomitant]
     Active Substance: TRAMADOL HYDROCHLORIDE
     Indication: Pancreatic carcinoma
     Dosage: 50 MG, Q8H
     Route: 048
     Dates: start: 20240209, end: 20240212
  6. Nebilenin [Concomitant]
     Indication: Angina pectoris
     Dosage: 5 MG, QD, START DATE: LONG TIME AGO
     Route: 048
     Dates: end: 20240213

REACTIONS (2)
  - Oesophageal mucosal tear [Fatal]
  - Gastrointestinal haemorrhage [Fatal]

NARRATIVE: CASE EVENT DATE: 20240213
